FAERS Safety Report 8816248 (Version 1)
Quarter: 2012Q4

REPORT INFORMATION
  Report Type: Spontaneous
  Country: US (occurrence: None)
  Receive Date: 20120927
  Receipt Date: 20120927
  Transmission Date: 20130627
  Serious: Yes (Other)
  Sender: FDA-Public Use
  Company Number: None

PATIENT
  Age: 48 Year
  Sex: Female
  Weight: 68.04 kg

DRUGS (2)
  1. CYMBALTA [Suspect]
     Indication: NERVE PAIN
     Dosage: 20mg daily po
     Route: 048
     Dates: start: 20120818, end: 20120914
  2. CYMBALTA [Suspect]
     Indication: DEPRESSION
     Dosage: 20mg daily po
     Route: 048
     Dates: start: 20120818, end: 20120914

REACTIONS (6)
  - Fibrocystic breast disease [None]
  - Uterine spasm [None]
  - Back pain [None]
  - Pain in extremity [None]
  - Fatigue [None]
  - Vaginal haemorrhage [None]
